FAERS Safety Report 21028461 (Version 3)
Quarter: 2022Q3

REPORT INFORMATION
  Report Type: Other
  Country: JP (occurrence: JP)
  Receive Date: 20220630
  Receipt Date: 20220726
  Transmission Date: 20221027
  Serious: Yes (Other)
  Sender: FDA-Public Use
  Company Number: JP-CHUGAI-2022024361AA

PATIENT
  Age: 70 Year
  Sex: Female
  Weight: 60.8 kg

DRUGS (5)
  1. OBINUTUZUMAB [Suspect]
     Active Substance: OBINUTUZUMAB
     Indication: Follicular lymphoma
     Dosage: 1000 MILLIGRAM, ONCE/3WEEKS
     Route: 042
  2. CYCLOPHOSPHAMIDE [Suspect]
     Active Substance: CYCLOPHOSPHAMIDE
     Indication: Follicular lymphoma
     Dosage: UNK
     Route: 041
     Dates: start: 20211015, end: 20220128
  3. DOXORUBICIN HYDROCHLORIDE [Suspect]
     Active Substance: DOXORUBICIN HYDROCHLORIDE
     Indication: Follicular lymphoma
     Dosage: UNK
     Route: 041
     Dates: start: 20211015, end: 20220128
  4. VINCRISTINE SULFATE [Suspect]
     Active Substance: VINCRISTINE SULFATE
     Indication: Follicular lymphoma
     Dosage: UNK
     Route: 041
     Dates: start: 20211015, end: 20211216
  5. PREDNISOLONE [Suspect]
     Active Substance: PREDNISOLONE
     Indication: Follicular lymphoma
     Dosage: UNK
     Route: 048
     Dates: start: 20211015, end: 20220131

REACTIONS (1)
  - Myelosuppression [Recovering/Resolving]

NARRATIVE: CASE EVENT DATE: 20220506
